FAERS Safety Report 5252134-X (Version None)
Quarter: 2007Q1

REPORT INFORMATION
  Report Type: 
  Country: None (occurrence: None)
  Receive Date: 20070226
  Receipt Date: 20070212
  Transmission Date: 20070707
  Serious: Yes (Other)
  Sender: FDA-Public Use
  Company Number: A-NJ2007-14176

PATIENT
  Age: 67 Year
  Sex: Female

DRUGS (1)
  1. TRACLEER [Suspect]
     Indication: PULMONARY HYPERTENSION
     Dosage: ORAL
     Route: 048
     Dates: start: 20070122, end: 20070122

REACTIONS (4)
  - BLOOD PRESSURE DECREASED [None]
  - HALLUCINATION [None]
  - HYPERSENSITIVITY [None]
  - PALPITATIONS [None]
